FAERS Safety Report 6522197-X (Version None)
Quarter: 2009Q4

REPORT INFORMATION
  Report Type: 
  Country: None (occurrence: None)
  Receive Date: 20091229
  Receipt Date: 20091229
  Transmission Date: 20100525
  Serious: Yes (Life-Threatening, Hospitalization)
  Sender: FDA-Public Use
  Company Number: None

PATIENT
  Age: 23 Year
  Sex: Female
  Weight: 68 kg

DRUGS (11)
  1. PERCOCET [Suspect]
     Indication: PAIN
     Dosage: #90 TABS/2 DAYS/PO
     Route: 048
     Dates: start: 20091118, end: 20091120
  2. SYNTHROID [Concomitant]
  3. WELLBUTRIN [Concomitant]
  4. CELEXA [Concomitant]
  5. TOPAMAX [Concomitant]
  6. PROTONIX [Concomitant]
  7. XANAX [Concomitant]
  8. FENTANYL CITRATE [Concomitant]
  9. HYDROMORPHONE [Concomitant]
  10. COLACE [Concomitant]
  11. SENNA [Concomitant]

REACTIONS (7)
  - ACUTE HEPATIC FAILURE [None]
  - BRAIN OEDEMA [None]
  - CONTINUOUS HAEMODIAFILTRATION [None]
  - INTERNATIONAL NORMALISED RATIO INCREASED [None]
  - LIVER TRANSPLANT [None]
  - OVERDOSE [None]
  - RENAL FAILURE [None]
